FAERS Safety Report 15805267 (Version 1)
Quarter: 2019Q1

REPORT INFORMATION
  Report Type: Spontaneous
  Country: GB (occurrence: GB)
  Receive Date: 20190110
  Receipt Date: 20190110
  Transmission Date: 20190417
  Serious: Yes (Life-Threatening)
  Sender: FDA-Public Use
  Company Number: GB-TEVA-2019-GB-997037

PATIENT
  Age: 46 Year
  Sex: Female
  Weight: 98.2 kg

DRUGS (8)
  1. ATORVASTATIN [Concomitant]
     Active Substance: ATORVASTATIN
  2. CEFALEXIN [Concomitant]
     Active Substance: CEPHALEXIN
  3. GABAPENTIN. [Suspect]
     Active Substance: GABAPENTIN
     Indication: FACIAL PAIN
     Dosage: 900 MILLIGRAM DAILY;
     Route: 048
     Dates: start: 20181206
  4. TAMOXIFEN [Concomitant]
     Active Substance: TAMOXIFEN
  5. LANSOPRAZOLE. [Concomitant]
     Active Substance: LANSOPRAZOLE
  6. CITALOPRAM [Concomitant]
     Active Substance: CITALOPRAM HYDROBROMIDE
  7. CANDESARTAN. [Concomitant]
     Active Substance: CANDESARTAN
  8. FERROUS FUMARATE [Concomitant]
     Active Substance: FERROUS FUMARATE

REACTIONS (1)
  - Anaphylactic reaction [Recovering/Resolving]

NARRATIVE: CASE EVENT DATE: 20181207
